FAERS Safety Report 6102783-1 (Version None)
Quarter: 2009Q1

REPORT INFORMATION
  Report Type: 
  Country: None (occurrence: None)
  Receive Date: 20090304
  Receipt Date: 20090303
  Transmission Date: 20090719
  Serious: No
  Sender: FDA-Public Use
  Company Number: US-B.I. PHARMACEUTICALS,INC./RIDGEFIELD-2009-BP-02248BP

PATIENT
  Age: 69 Year
  Sex: Male

DRUGS (10)
  1. FLOMAX [Suspect]
  2. UROXATRAL [Concomitant]
     Indication: PROSTATIC DISORDER
     Dosage: 10MG
     Route: 048
     Dates: start: 20090101
  3. UROXATRAL [Concomitant]
     Indication: NOCTURIA
  4. CALAN [Concomitant]
  5. ALTACE [Concomitant]
  6. ACTIGALL [Concomitant]
  7. SYNTHROID [Concomitant]
  8. INDAPAMIDE [Concomitant]
  9. HYTRIN [Concomitant]
  10. CIPIONATE (DEPO-TESTOSTERONE) [Concomitant]
     Indication: HORMONE REPLACEMENT THERAPY

REACTIONS (3)
  - DRUG INEFFECTIVE [None]
  - DRUG INTOLERANCE [None]
  - ERECTILE DYSFUNCTION [None]
